FAERS Safety Report 10004111 (Version 3)
Quarter: 2014Q2

REPORT INFORMATION
  Report Type: Spontaneous
  Country: US (occurrence: US)
  Receive Date: 20140312
  Receipt Date: 20140611
  Transmission Date: 20141212
  Serious: No
  Sender: FDA-Public Use
  Company Number: US-INCYTE CORPORATION-2014IN000034

PATIENT
  Age: 58 Year
  Sex: Female

DRUGS (17)
  1. JAKAFI [Suspect]
     Indication: MYELOFIBROSIS
     Dosage: 15 MG, BID
     Route: 048
  2. JAKAFI [Suspect]
     Dosage: 15 MG, BID
     Route: 048
     Dates: start: 20131201
  3. TRICOR                             /00090101/ [Concomitant]
  4. METFORMIN [Concomitant]
  5. GLIPIZIDE [Concomitant]
  6. LOSARTAN + HIDROCLOROTIAZIDA [Concomitant]
  7. ALLOPURINOL [Concomitant]
  8. AMITRIPTYLINE [Concomitant]
  9. ASPIRIN [Concomitant]
     Dosage: 81 MG
  10. FLOVENT [Concomitant]
  11. IPRATROPIUM  INHALER                    /00391402/ [Concomitant]
  12. AZITHROMYCIN [Concomitant]
  13. MULTIVITAMINS [Concomitant]
  14. THIAMINE [Concomitant]
  15. NIACIN [Concomitant]
  16. CALCIUM  SUPPLEMENT                          /00060701/ [Concomitant]
  17. MAGNESIUM  SUPPLEMENT                        /00123201/ [Concomitant]

REACTIONS (2)
  - Rash [Not Recovered/Not Resolved]
  - Headache [Unknown]
